FAERS Safety Report 9025494 (Version 3)
Quarter: 2014Q1

REPORT INFORMATION
  Report Type: Spontaneous
  Country: FR (occurrence: FR)
  Receive Date: 20130122
  Receipt Date: 20140220
  Transmission Date: 20141002
  Serious: Yes (Life-Threatening, Other)
  Sender: FDA-Public Use
  Company Number: FR-BRISTOL-MYERS SQUIBB COMPANY-17293291

PATIENT
  Age: 67 Year
  Sex: Female

DRUGS (4)
  1. ELIQUIS [Suspect]
     Indication: THROMBOSIS PROPHYLAXIS
     Route: 048
     Dates: start: 20121120, end: 20130104
  2. ZOCOR [Concomitant]
  3. CORGARD [Concomitant]
  4. ADANCOR [Concomitant]

REACTIONS (2)
  - Pulmonary embolism [Recovering/Resolving]
  - Phlebitis [Unknown]
